FAERS Safety Report 10089521 (Version 1)
Quarter: 2014Q2

REPORT INFORMATION
  Report Type: Spontaneous
  Country: US (occurrence: US)
  Receive Date: 20140421
  Receipt Date: 20140421
  Transmission Date: 20141212
  Serious: Yes (Other)
  Sender: FDA-Public Use
  Company Number: US-FRI-1000066545

PATIENT
  Age: 25 Year
  Sex: Female

DRUGS (1)
  1. LINZESS [Suspect]

REACTIONS (1)
  - Haematochezia [Unknown]
